FAERS Safety Report 10272441 (Version 2)
Quarter: 2014Q3

REPORT INFORMATION
  Report Type: Spontaneous
  Country: US (occurrence: None)
  Receive Date: 20140627
  Receipt Date: 20140711
  Transmission Date: 20150326
  Serious: Yes (Other)
  Sender: FDA-Public Use
  Company Number: ADR-2014-01111

PATIENT
  Age: 71 Year
  Sex: Female
  Weight: 68.04 kg

DRUGS (12)
  1. ASPIRIN. [Suspect]
     Active Substance: ASPIRIN
  2. ALPHA LIPOIC ACID [Suspect]
     Active Substance: .ALPHA.-LIPOIC ACID
  3. TENORMIN [Suspect]
     Active Substance: ATENOLOL
  4. COQ10 [Suspect]
     Active Substance: UBIDECARENONE
  5. MULTIVITAMIN [Suspect]
     Active Substance: VITAMINS
     Dosage: 1 DAILY
  6. METFORMIN [Suspect]
     Active Substance: METFORMIN HYDROCHLORIDE
  7. VALIUM [Suspect]
     Active Substance: DIAZEPAM
  8. COZAAR [Suspect]
     Active Substance: LOSARTAN POTASSIUM
  9. MILK THISTLE [Suspect]
     Active Substance: MILK THISTLE
  10. OMEGA-3 FATTY ACIDS [Suspect]
     Active Substance: OMEGA-3 FATTY ACIDS
  11. BACLOFEN INTRATHECAL [Suspect]
     Active Substance: BACLOFEN
     Indication: MUSCLE SPASTICITY
     Dates: start: 20110111
  12. CHROMIUM [Suspect]
     Active Substance: CHROMIC CHLORIDE\CHROMIUM

REACTIONS (3)
  - Cystitis [None]
  - Clostridium difficile infection [None]
  - Infection [None]

NARRATIVE: CASE EVENT DATE: 20110111
